FAERS Safety Report 7506593-X (Version None)
Quarter: 2011Q2

REPORT INFORMATION
  Report Type: 
  Country: None (occurrence: None)
  Receive Date: 20110526
  Receipt Date: 20110509
  Transmission Date: 20111010
  Serious: No
  Sender: FDA-Public Use
  Company Number: US-B.I. PHARMACEUTICALS,INC./RIDGEFIELD-2011-BP-08158BP

PATIENT
  Age: 81 Year
  Sex: Female

DRUGS (3)
  1. PRADAXA [Suspect]
     Indication: ATRIAL FIBRILLATION
     Dosage: 150 MG
     Route: 048
     Dates: start: 20110312
  2. GLYBURIDE [Concomitant]
     Indication: TYPE 2 DIABETES MELLITUS
  3. ONGLYZA [Concomitant]
     Indication: TYPE 2 DIABETES MELLITUS

REACTIONS (2)
  - EYE HAEMORRHAGE [None]
  - HEADACHE [None]
